FAERS Safety Report 9283420 (Version 1)
Quarter: 2013Q2

REPORT INFORMATION
  Report Type: Spontaneous
  Country: US (occurrence: US)
  Receive Date: 20130510
  Receipt Date: 20130510
  Transmission Date: 20140414
  Serious: No
  Sender: FDA-Public Use
  Company Number: US-GLAXOSMITHKLINE-A1007155A

PATIENT
  Age: 61 Year
  Sex: Female
  Weight: 62.7 kg

DRUGS (9)
  1. TYKERB [Suspect]
     Indication: PRODUCT USED FOR UNKNOWN INDICATION
     Dosage: 1250MG PER DAY
     Route: 065
     Dates: start: 20101201
  2. XELODA [Concomitant]
     Dosage: 500MG TWICE PER DAY
     Route: 048
     Dates: start: 20101201
  3. ARIMIDEX [Concomitant]
     Route: 048
  4. ZOMETA [Concomitant]
  5. CALCIUM [Concomitant]
  6. VITAMIN D [Concomitant]
  7. NORVASC [Concomitant]
  8. ASPIRIN [Concomitant]
  9. KCL [Concomitant]

REACTIONS (1)
  - Dry skin [Recovered/Resolved]
